FAERS Safety Report 15803934 (Version 1)
Quarter: 2019Q1

REPORT INFORMATION
  Report Type: Spontaneous
  Country: US (occurrence: US)
  Receive Date: 20190109
  Receipt Date: 20190109
  Transmission Date: 20190417
  Serious: Yes (Life-Threatening, Hospitalization, Other)
  Sender: FDA-Public Use
  Company Number: None

PATIENT
  Age: 3 Month
  Sex: Female

DRUGS (1)
  1. PROVENT SKIN TAG REMOVER [Suspect]
     Active Substance: HOMEOPATHICS
     Indication: WRONG PRODUCT ADMINISTERED
     Dosage: ?          OTHER FREQUENCY:1 TIME;?
     Route: 048
     Dates: start: 20190104, end: 20190104

REACTIONS (7)
  - Pneumonia aspiration [None]
  - Cough [None]
  - Tachycardia [None]
  - Lung consolidation [None]
  - Status epilepticus [None]
  - Pyrexia [None]
  - Wrong product administered [None]

NARRATIVE: CASE EVENT DATE: 20190104
